FAERS Safety Report 18509594 (Version 1)
Quarter: 2020Q4

REPORT INFORMATION
  Report Type: Spontaneous
  Country: FR (occurrence: FR)
  Receive Date: 20201117
  Receipt Date: 20201117
  Transmission Date: 20210114
  Serious: Yes (Other)
  Sender: FDA-Public Use
  Company Number: FR-SA-2020SA324472

PATIENT

DRUGS (3)
  1. RIFADINE [Suspect]
     Active Substance: RIFAMPIN
     Indication: TUBERCULOSIS
     Dosage: 2 DF, QD
     Route: 048
     Dates: start: 20200611
  2. ISONIAZID. [Suspect]
     Active Substance: ISONIAZID
     Indication: TUBERCULOSIS
     Dosage: 200 MG, QD
     Route: 048
     Dates: start: 20200611
  3. PIRILENE [Suspect]
     Active Substance: PYRAZINAMIDE
     Indication: TUBERCULOSIS
     Dosage: 2.5 DF, QD
     Route: 048
     Dates: start: 20200611

REACTIONS (1)
  - Microcytic anaemia [Not Recovered/Not Resolved]

NARRATIVE: CASE EVENT DATE: 202010
